FAERS Safety Report 9479603 (Version 1)
Quarter: 2013Q3

REPORT INFORMATION
  Report Type: Spontaneous
  Country: BR (occurrence: BR)
  Receive Date: 20130827
  Receipt Date: 20130827
  Transmission Date: 20140515
  Serious: Yes (Other)
  Sender: FDA-Public Use
  Company Number: PHHY2013BR092472

PATIENT
  Sex: Female

DRUGS (1)
  1. CATAFLAM [Suspect]
     Dosage: 10 DRP, UNK
     Route: 048

REACTIONS (2)
  - Accidental overdose [Unknown]
  - Diplopia [Unknown]
